FAERS Safety Report 5020176-5 (Version None)
Quarter: 2006Q2

REPORT INFORMATION
  Report Type: 
  Country: None (occurrence: None)
  Receive Date: 20060602
  Receipt Date: 20060511
  Transmission Date: 20061013
  Serious: Yes (Other)
  Sender: FDA-Public Use
  Company Number: BR200605005351

PATIENT
  Age: 62 Year
  Sex: Female
  Weight: 53.5 kg

DRUGS (3)
  1. FORTEO [Suspect]
     Indication: OSTEOPOROSIS
     Dosage: 20 UG, DAILY 1/D, SUBCUTANEOUS
     Route: 058
     Dates: start: 20051201, end: 20060401
  2. FORTEOPEN 9250 MCG/ML) (FORTEO PEN 250MCG/ML (3ML)) PEN, DISPOSABLE [Concomitant]
  3. COLECALCIFEROL (COLECALCIFEROL) [Concomitant]

REACTIONS (1)
  - BREAST NEOPLASM [None]
